FAERS Safety Report 18533403 (Version 7)
Quarter: 2021Q3

REPORT INFORMATION
  Report Type: Other
  Country: DE (occurrence: DE)
  Receive Date: 20201123
  Receipt Date: 20210930
  Transmission Date: 20211014
  Serious: Yes (Other)
  Sender: FDA-Public Use
  Company Number: DE-ROCHE-2211602

PATIENT
  Age: 49 Year
  Sex: Female
  Weight: 56 kg

DRUGS (11)
  1. OCREVUS [Suspect]
     Active Substance: OCRELIZUMAB
     Indication: RELAPSING-REMITTING MULTIPLE SCLEROSIS
     Route: 042
     Dates: start: 20181026
  2. OCREVUS [Suspect]
     Active Substance: OCRELIZUMAB
     Route: 042
     Dates: start: 20201119
  3. L?THYROXIN [Suspect]
     Active Substance: LEVOTHYROXINE SODIUM
     Route: 065
  4. OCREVUS [Suspect]
     Active Substance: OCRELIZUMAB
     Route: 042
     Dates: start: 20190510
  5. OCREVUS [Suspect]
     Active Substance: OCRELIZUMAB
     Route: 042
     Dates: start: 20200514
  6. BOTOX [Concomitant]
     Active Substance: ONABOTULINUMTOXINA
     Indication: MUSCLE SPASTICITY
     Dosage: REGULARLY INJECTIONS INTO THE FEET
  7. L?THYROXIN [Suspect]
     Active Substance: LEVOTHYROXINE SODIUM
     Indication: PRODUCT USED FOR UNKNOWN INDICATION
     Dosage: ALTERNATING 50 AND 75 UG
     Route: 065
  8. OCREVUS [Suspect]
     Active Substance: OCRELIZUMAB
     Route: 042
     Dates: start: 20181109
  9. OCREVUS [Suspect]
     Active Substance: OCRELIZUMAB
     Route: 042
     Dates: start: 20191114
  10. L?THYROXIN [Suspect]
     Active Substance: LEVOTHYROXINE SODIUM
     Dosage: ALTERNATING
     Route: 065
  11. COMIRNATY [Suspect]
     Active Substance: TOZINAMERAN
     Indication: COVID-19 IMMUNISATION
     Dosage: FIRST DOSE?SECOND DOSE ON 11/JUN/2021?THIRD DOSE ON 07?SEP?2021
     Route: 065

REACTIONS (18)
  - Vaginal infection [Recovered/Resolved]
  - Mental disorder [Recovered/Resolved]
  - Headache [Recovered/Resolved]
  - Vaginal infection [Recovered/Resolved]
  - Inflammation [Recovered/Resolved]
  - SARS-CoV-2 antibody test negative [Not Recovered/Not Resolved]
  - Vaginal infection [Recovering/Resolving]
  - Fatigue [Recovered/Resolved]
  - Night sweats [Recovered/Resolved]
  - B-lymphocyte count decreased [Recovering/Resolving]
  - Ill-defined disorder [Unknown]
  - Fatigue [Recovered/Resolved]
  - Hyperthyroidism [Not Recovered/Not Resolved]
  - Erythema [Recovered/Resolved]
  - Hypothyroidism [Unknown]
  - Cystitis noninfective [Recovered/Resolved]
  - Oral fungal infection [Recovered/Resolved]
  - Pulpitis dental [Unknown]

NARRATIVE: CASE EVENT DATE: 20181026
